FAERS Safety Report 15130575 (Version 4)
Quarter: 2018Q4

REPORT INFORMATION
  Report Type: Other
  Country: GB (occurrence: GB)
  Receive Date: 20180711
  Receipt Date: 20181012
  Transmission Date: 20190204
  Serious: Yes (Hospitalization, Other)
  Sender: FDA-Public Use
  Company Number: GB-DIMETHAID UK LIMITED-DIM-002074-2018

PATIENT
  Age: 20 Year
  Sex: Male

DRUGS (5)
  1. DICLOFENAC SODIUM. [Interacting]
     Active Substance: DICLOFENAC SODIUM
     Indication: CHEST PAIN
  2. TOBRAMYCIN. [Interacting]
     Active Substance: TOBRAMYCIN
     Indication: PSEUDOMONAS INFECTION
     Dosage: 180 MG, TID (9.4 MG/KG/DAY)
     Route: 042
     Dates: start: 200004
  3. DICLOFENAC SODIUM. [Suspect]
     Active Substance: DICLOFENAC SODIUM
     Indication: MUSCULOSKELETAL CHEST PAIN
     Dosage: UNK
     Route: 065
     Dates: start: 200004
  4. COLOMYCIN (COLISTIN SULFATE) [Concomitant]
     Active Substance: COLISTIN SULFATE
     Indication: PSEUDOMONAS INFECTION
     Dosage: 2 MEGAUNITS, TID (6 M IU)
     Route: 042
     Dates: start: 200004
  5. TOBRAMYCIN. [Interacting]
     Active Substance: TOBRAMYCIN
     Indication: INFECTIVE PULMONARY EXACERBATION OF CYSTIC FIBROSIS
     Dosage: UNK
     Route: 065

REACTIONS (3)
  - Acute kidney injury [Recovering/Resolving]
  - Drug interaction [Recovering/Resolving]
  - Product use in unapproved indication [Recovered/Resolved]

NARRATIVE: CASE EVENT DATE: 200004
